FAERS Safety Report 22264457 (Version 1)
Quarter: 2023Q2

REPORT INFORMATION
  Report Type: Spontaneous
  Country: GB (occurrence: GB)
  Receive Date: 20230428
  Receipt Date: 20230428
  Transmission Date: 20230721
  Serious: Yes (Death, Other)
  Sender: FDA-Public Use
  Company Number: GB-PFIZER INC-202300165723

PATIENT
  Age: 4 Year
  Sex: Male

DRUGS (10)
  1. VANCOMYCIN HYDROCHLORIDE [Suspect]
     Active Substance: VANCOMYCIN HYDROCHLORIDE
     Indication: Neutropenia
     Dosage: UNK
  2. VANCOMYCIN HYDROCHLORIDE [Suspect]
     Active Substance: VANCOMYCIN HYDROCHLORIDE
     Indication: Pyrexia
  3. CEFTAZIDIME [Suspect]
     Active Substance: CEFTAZIDIME
     Indication: Neutropenia
     Dosage: UNK
  4. CEFTAZIDIME [Suspect]
     Active Substance: CEFTAZIDIME
     Indication: Pyrexia
  5. AMPHOTERICIN B [Suspect]
     Active Substance: AMPHOTERICIN B
     Indication: Neutropenia
     Dosage: UNK
  6. AMPHOTERICIN B [Suspect]
     Active Substance: AMPHOTERICIN B
     Indication: Pyrexia
  7. IMIPENEM [Suspect]
     Active Substance: IMIPENEM
     Indication: Neutropenia
     Dosage: UNK
  8. IMIPENEM [Suspect]
     Active Substance: IMIPENEM
     Indication: Pyrexia
  9. TEICOPLANIN [Suspect]
     Active Substance: TEICOPLANIN
     Indication: Neutropenia
     Dosage: UNK
  10. TEICOPLANIN [Suspect]
     Active Substance: TEICOPLANIN
     Indication: Pyrexia

REACTIONS (3)
  - Pneumonia [Fatal]
  - Lactobacillus infection [Unknown]
  - Off label use [Unknown]
